FAERS Safety Report 18009771 (Version 1)
Quarter: 2020Q3

REPORT INFORMATION
  Report Type: Spontaneous
  Country: DE (occurrence: DE)
  Receive Date: 20200710
  Receipt Date: 20200710
  Transmission Date: 20201103
  Serious: Yes (Other)
  Sender: FDA-Public Use
  Company Number: DE-AMGEN-DEUSP2020109046

PATIENT
  Age: 51 Year
  Sex: Female
  Weight: 64 kg

DRUGS (3)
  1. REPATHA [Suspect]
     Active Substance: EVOLOCUMAB
     Indication: CORONARY ARTERY DISEASE
     Dosage: 140 MILLIGRAM, Q2WK
     Route: 058
     Dates: start: 20200612, end: 20200626
  2. ASA [Concomitant]
     Active Substance: ASPIRIN
     Indication: CORONARY ARTERY DISEASE
     Dosage: 100 MILLIGRAM, QD
  3. OMEP [OMEPRAZOLE] [Concomitant]
     Dosage: 20 MILLIGRAM, AS NECESSARY

REACTIONS (4)
  - Vertigo [Recovered/Resolved]
  - Flatulence [Recovered/Resolved]
  - Decreased appetite [Recovered/Resolved]
  - Nausea [Recovered/Resolved]

NARRATIVE: CASE EVENT DATE: 202006
